FAERS Safety Report 6159854-3 (Version None)
Quarter: 2009Q2

REPORT INFORMATION
  Report Type: 
  Country: None (occurrence: None)
  Receive Date: 20090420
  Receipt Date: 20090413
  Transmission Date: 20091009
  Serious: Yes (Death, Life-Threatening, Hospitalization, Other)
  Sender: FDA-Public Use
  Company Number: JP-ASTRAZENECA-2008SE04985

PATIENT
  Sex: Male
  Weight: 49 kg

DRUGS (9)
  1. TCV-116 [Suspect]
     Indication: ESSENTIAL HYPERTENSION
     Route: 048
     Dates: start: 20071106, end: 20080225
  2. TCV-116 [Suspect]
     Route: 048
     Dates: start: 20080226, end: 20081019
  3. AD-4833 [Suspect]
     Indication: TYPE 2 DIABETES MELLITUS
     Route: 048
     Dates: start: 20071106, end: 20080225
  4. AD-4833 [Suspect]
     Route: 048
     Dates: start: 20080226, end: 20081019
  5. KARY UNI [Concomitant]
     Indication: CATARACT
     Route: 047
     Dates: start: 20010514, end: 20090205
  6. ALOSENN [Concomitant]
     Indication: CONSTIPATION
     Route: 048
     Dates: start: 20081007, end: 20090205
  7. MOHRUS [Concomitant]
     Indication: PERIARTHRITIS
     Route: 062
     Dates: start: 20081007, end: 20081009
  8. ZANTAC [Concomitant]
     Indication: ABDOMINAL PAIN UPPER
     Route: 048
     Dates: start: 20081007, end: 20090205
  9. AMARYL [Concomitant]
     Indication: TYPE 2 DIABETES MELLITUS
     Route: 048
     Dates: start: 20081007

REACTIONS (1)
  - PANCREATIC CARCINOMA [None]
